FAERS Safety Report 7615740-0 (Version None)
Quarter: 2011Q3

REPORT INFORMATION
  Report Type: 
  Country: None (occurrence: None)
  Receive Date: 20110715
  Receipt Date: 20110715
  Transmission Date: 20111222
  Serious: Yes (Disabling, Other)
  Sender: FDA-Public Use
  Company Number: None

PATIENT
  Sex: Female
  Weight: 92.5338 kg

DRUGS (6)
  1. AMITRIPTYLINE HCL [Concomitant]
  2. LYRICA [Suspect]
     Indication: FIBROMYALGIA
     Dosage: 50 MG 1 PER DAY AT PM PO
     Route: 048
     Dates: start: 20110513, end: 20110515
  3. STEROIDS [Concomitant]
  4. HUMIRA [Concomitant]
  5. MERCAPTOPURINE [Concomitant]
  6. INDOMETHACIN [Concomitant]

REACTIONS (20)
  - LOSS OF CONTROL OF LEGS [None]
  - PHOTOPHOBIA [None]
  - THINKING ABNORMAL [None]
  - CONVULSION [None]
  - DEVICE FAILURE [None]
  - ASTIGMATISM [None]
  - HYPOAESTHESIA [None]
  - COORDINATION ABNORMAL [None]
  - SENSORY LOSS [None]
  - TOXICITY TO VARIOUS AGENTS [None]
  - BLOOD PRESSURE INCREASED [None]
  - OXYGEN SATURATION DECREASED [None]
  - VISUAL ACUITY REDUCED [None]
  - HEART RATE INCREASED [None]
  - IMPAIRED DRIVING ABILITY [None]
  - ACTIVITIES OF DAILY LIVING IMPAIRED [None]
  - MIGRAINE WITH AURA [None]
  - DIZZINESS [None]
  - SKIN DISORDER [None]
  - IMPAIRED WORK ABILITY [None]
